FAERS Safety Report 13333727 (Version 1)
Quarter: 2017Q1

REPORT INFORMATION
  Report Type: Spontaneous
  Country: NL (occurrence: NL)
  Receive Date: 20170314
  Receipt Date: 20170314
  Transmission Date: 20170428
  Serious: Yes (Other)
  Sender: FDA-Public Use
  Company Number: NL-AMGEN-NLDSP2017036234

PATIENT
  Age: 72 Year
  Sex: Female

DRUGS (9)
  1. FENTANYL TEVA [Concomitant]
     Active Substance: FENTANYL
     Dosage: 50MCG/UUR
  2. CALCI CHEW D3 [Concomitant]
     Active Substance: CALCIUM CARBONATE\CHOLECALCIFEROL
     Dosage: 1000MG/8001E
  3. CAPHOSOL [Concomitant]
     Active Substance: CALCIUM CHLORIDE\SODIUM CHLORIDE\SODIUM PHOSPHATE, DIBASIC, ANHYDROUS\SODIUM PHOSPHATE, MONOBASIC, ANHYDROUS
     Dosage: TIMES PER 1 DF
  4. METOCLOPRAMIDE HCL [Concomitant]
     Active Substance: METOCLOPRAMIDE HYDROCHLORIDE
     Dosage: 10 MG, TIMES PER 1 DF
  5. ABSTRAL [Concomitant]
     Active Substance: FENTANYL CITRATE
     Dosage: 200 MUG, TIMES PER 1 DF
     Route: 060
  6. MACROGOL [Concomitant]
     Active Substance: POLYETHYLENE GLYCOLS
  7. PANTOPRAZOL TEVA [Concomitant]
     Active Substance: PANTOPRAZOLE SODIUM
     Dosage: 40 MG, TIMES PER 1 DF
  8. XGEVA [Suspect]
     Active Substance: DENOSUMAB
     Indication: PRODUCT USED FOR UNKNOWN INDICATION
     Dosage: 120 MG; 70MG/ML, Q4WK
     Route: 065
     Dates: start: 20161216, end: 20170223
  9. LORAZEPAM. [Concomitant]
     Active Substance: LORAZEPAM
     Dosage: 1 MG, TIMES PER 1 DF

REACTIONS (1)
  - Osteonecrosis [Unknown]

NARRATIVE: CASE EVENT DATE: 201702
